FAERS Safety Report 23218370 (Version 1)
Quarter: 2023Q4

REPORT INFORMATION
  Report Type: Spontaneous
  Country: US (occurrence: US)
  Receive Date: 20231122
  Receipt Date: 20231122
  Transmission Date: 20240109
  Serious: No
  Sender: FDA-Public Use
  Company Number: US-KARYOPHARM-2023KPT002206

PATIENT

DRUGS (14)
  1. XPOVIO [Suspect]
     Active Substance: SELINEXOR
     Indication: Plasma cell myeloma
     Dosage: 60 MG, WEEKLY
     Route: 048
     Dates: start: 20231108, end: 20231109
  2. DEXAMETHASONE [Concomitant]
     Active Substance: DEXAMETHASONE
  3. ACYCLOVIR [Concomitant]
     Active Substance: ACYCLOVIR
  4. METOPROLOL [Concomitant]
     Active Substance: METOPROLOL
  5. TAMSULOSIN [Concomitant]
     Active Substance: TAMSULOSIN
  6. ROPINIROLE [Concomitant]
     Active Substance: ROPINIROLE
  7. TRAMADOL [Concomitant]
     Active Substance: TRAMADOL\TRAMADOL HYDROCHLORIDE
  8. FINASTERIDE [Concomitant]
     Active Substance: FINASTERIDE
  9. NITROGLYCERIN [Concomitant]
     Active Substance: NITROGLYCERIN
  10. ELIQUIS [Concomitant]
     Active Substance: APIXABAN
  11. EFFIENT [Concomitant]
     Active Substance: PRASUGREL HYDROCHLORIDE
  12. ZOFRAN [Concomitant]
     Active Substance: ONDANSETRON HYDROCHLORIDE
  13. ATIVAN [Concomitant]
     Active Substance: LORAZEPAM
  14. LIDOCAINE [Concomitant]
     Active Substance: LIDOCAINE

REACTIONS (1)
  - Nausea [Unknown]

NARRATIVE: CASE EVENT DATE: 20231108
